FAERS Safety Report 9737403 (Version 1)
Quarter: 2013Q4

REPORT INFORMATION
  Report Type: Report from Study
  Country: KR (occurrence: KR)
  Receive Date: 20131206
  Receipt Date: 20131206
  Transmission Date: 20140711
  Serious: Yes (Death)
  Sender: FDA-Public Use
  Company Number: KR-ABBVIE-13P-090-1174461-00

PATIENT
  Age: 2 Month
  Sex: Female
  Weight: 2.5 kg

DRUGS (7)
  1. SYNAGIS [Suspect]
     Indication: PRODUCT USED FOR UNKNOWN INDICATION
     Dates: start: 20121015, end: 20121015
  2. ALVITYL [Concomitant]
     Indication: VITAMIN SUPPLEMENTATION
     Dosage: 2 MG DAILY
     Route: 048
     Dates: start: 20120921, end: 20121015
  3. DIGOXIN [Concomitant]
     Indication: CONGENITAL HEART VALVE DISORDER
     Route: 048
     Dates: start: 20120823, end: 20121015
  4. FERRUMATE (R) SOLN [Concomitant]
     Indication: ANAEMIA PROPHYLAXIS
     Dosage: 0.3 ML DAILY
     Route: 048
     Dates: start: 20120921, end: 20121015
  5. FUROSEMIDE [Concomitant]
     Indication: CONGENITAL HEART VALVE DISORDER
     Dosage: 3 MG DAILY
     Route: 048
     Dates: start: 20121015, end: 20121015
  6. ROTAVIRUS VACCINE [Concomitant]
     Indication: ROTAVIRUS INFECTION
     Dosage: 2.5 MG DAILY
     Route: 048
     Dates: start: 20121015, end: 20121015
  7. ROTAVIRUS VACCINE [Concomitant]
     Indication: PROPHYLAXIS

REACTIONS (1)
  - Death [Fatal]
